FAERS Safety Report 23340272 (Version 1)
Quarter: 2023Q4

REPORT INFORMATION
  Report Type: Spontaneous
  Country: FR (occurrence: FR)
  Receive Date: 20231227
  Receipt Date: 20231227
  Transmission Date: 20240109
  Serious: Yes (Other)
  Sender: FDA-Public Use
  Company Number: FR-BoehringerIngelheim-2023-BI-279563

PATIENT
  Age: 72 Year
  Sex: Female

DRUGS (8)
  1. CLONIDINE [Suspect]
     Active Substance: CLONIDINE
     Indication: Hypertension
     Dosage: FORM STRENGTH: 0.15 MILLIGRAM PER MILLILITRE
     Dates: start: 202305, end: 202305
  2. TRANEXAMIC ACID [Concomitant]
     Active Substance: TRANEXAMIC ACID
     Indication: Haemorrhage prophylaxis
     Dates: start: 202305, end: 202305
  3. ROPIVACAINE [Concomitant]
     Active Substance: ROPIVACAINE
     Indication: Nerve block
     Dates: start: 202305, end: 202305
  4. PROPOFOL [Concomitant]
     Active Substance: PROPOFOL
     Indication: General anaesthesia
     Dates: start: 202305, end: 202305
  5. CISATRACURIUM [Concomitant]
     Active Substance: CISATRACURIUM
     Indication: General anaesthesia
     Dates: start: 202305, end: 202305
  6. KETAMINE [Concomitant]
     Active Substance: KETAMINE
     Indication: General anaesthesia
     Dates: start: 202305, end: 202305
  7. CEFAZOLIN SODIUM [Concomitant]
     Active Substance: CEFAZOLIN SODIUM
     Indication: Infection prophylaxis
     Dates: start: 202305, end: 202305
  8. ACETAMINOPHEN [Concomitant]
     Active Substance: ACETAMINOPHEN
     Indication: Product used for unknown indication

REACTIONS (1)
  - Anaphylactic reaction [Recovered/Resolved]

NARRATIVE: CASE EVENT DATE: 20230501
